FAERS Safety Report 7554122-7 (Version None)
Quarter: 2011Q2

REPORT INFORMATION
  Report Type: 
  Country: None (occurrence: None)
  Receive Date: 20110617
  Receipt Date: 20110608
  Transmission Date: 20111010
  Serious: Yes (Hospitalization, Other)
  Sender: FDA-Public Use
  Company Number: US-MYLANLABS-2011S1010760

PATIENT
  Age: 48 Year
  Sex: Female
  Weight: 59.88 kg

DRUGS (8)
  1. LEVETIRACETAM [Suspect]
     Route: 048
     Dates: start: 20101201, end: 20110105
  2. MIDODRINE HYDROCHLORIDE [Concomitant]
     Indication: HYPOTENSION
     Route: 048
     Dates: start: 20081001, end: 20110505
  3. LEVETIRACETAM [Suspect]
     Route: 048
     Dates: start: 20110105, end: 20110505
  4. LEVETIRACETAM [Suspect]
     Indication: CONVULSION
     Route: 048
     Dates: start: 20101101, end: 20101201
  5. LEVETIRACETAM [Suspect]
     Route: 048
     Dates: start: 20110105, end: 20110505
  6. FIORICET [Concomitant]
     Indication: MIGRAINE
     Dosage: 50MG/325MG/40MG
     Route: 048
     Dates: start: 20100101, end: 20110505
  7. CALTRATE + VITAMIN D [Concomitant]
  8. LEVETIRACETAM [Suspect]
     Route: 048
     Dates: start: 20101201, end: 20110105

REACTIONS (9)
  - INJURY [None]
  - EYE SWELLING [None]
  - CONCUSSION [None]
  - ELECTROENCEPHALOGRAM ABNORMAL [None]
  - CONTUSION [None]
  - CONVULSION [None]
  - LOSS OF CONSCIOUSNESS [None]
  - DRUG INEFFECTIVE FOR UNAPPROVED INDICATION [None]
  - GRAND MAL CONVULSION [None]
